FAERS Safety Report 7326669-X (Version None)
Quarter: 2011Q1

REPORT INFORMATION
  Report Type: 
  Country: None (occurrence: None)
  Receive Date: 20110216
  Receipt Date: 20110208
  Transmission Date: 20110831
  Serious: Yes (Other)
  Sender: FDA-Public Use
  Company Number: 2011SP006012

PATIENT
  Age: 26 Year
  Sex: Female
  Weight: 99.3377 kg

DRUGS (1)
  1. IMPLANON [Suspect]
     Indication: CONTRACEPTION
     Dosage: 1 DF;SBDE
     Route: 059
     Dates: start: 20101116

REACTIONS (2)
  - MALAISE [None]
  - BLOOD GLUCOSE INCREASED [None]
